FAERS Safety Report 12947637 (Version 1)
Quarter: 2016Q4

REPORT INFORMATION
  Report Type: Report from Study
  Country: FR (occurrence: FR)
  Receive Date: 20161116
  Receipt Date: 20161116
  Transmission Date: 20170207
  Serious: Yes (Other)
  Sender: FDA-Public Use
  Company Number: FR-ASTELLAS-2016US045241

PATIENT
  Age: 25 Year
  Sex: Male

DRUGS (1)
  1. AMPHOTERICIN B, LIPOSOME [Suspect]
     Active Substance: AMPHOTERICIN B
     Indication: FUNGAL SKIN INFECTION
     Route: 042

REACTIONS (3)
  - Hypokalaemia [Recovering/Resolving]
  - Off label use [Not Recovered/Not Resolved]
  - Renal tubular disorder [Recovering/Resolving]
